FAERS Safety Report 6103258-6 (Version None)
Quarter: 2009Q1

REPORT INFORMATION
  Report Type: 
  Country: None (occurrence: None)
  Receive Date: 20090302
  Receipt Date: 20090212
  Transmission Date: 20090719
  Serious: Yes (Death)
  Sender: FDA-Public Use
  Company Number: 1000004868

PATIENT
  Age: 40 Year
  Sex: Female

DRUGS (7)
  1. CITALOPRAM HYDROBROMIDE [Suspect]
  2. CODEINE [Suspect]
  3. DIPHENHYDRAMINE HCL [Suspect]
  4. CYCLOBENZAPRINE [Suspect]
  5. TRAZODONE HCL [Suspect]
  6. OLANZAPINE [Suspect]
  7. DEXTROMETHORPHAN HYDROBROMIDE [Suspect]

REACTIONS (4)
  - CARDIAC ARREST [None]
  - COMPLETED SUICIDE [None]
  - MULTIPLE DRUG OVERDOSE [None]
  - RESPIRATORY ARREST [None]
